FAERS Safety Report 20057058 (Version 2)
Quarter: 2021Q4

REPORT INFORMATION
  Report Type: Spontaneous
  Country: DE (occurrence: DE)
  Receive Date: 20211111
  Receipt Date: 20211124
  Transmission Date: 20220303
  Serious: Yes (Hospitalization, Other)
  Sender: FDA-Public Use
  Company Number: DE-BRISTOL-MYERS SQUIBB COMPANY-BMS-2021-119505

PATIENT
  Age: 75 Year
  Sex: Female

DRUGS (5)
  1. ELIQUIS [Suspect]
     Active Substance: APIXABAN
     Indication: Deep vein thrombosis
     Dosage: 10 MILLIGRAM, BID FOR 7 DAYS
     Route: 065
  2. ELIQUIS [Suspect]
     Active Substance: APIXABAN
     Indication: Pulmonary embolism
     Dosage: 5 MILLIGRAM, BID
     Route: 065
  3. ELIQUIS [Suspect]
     Active Substance: APIXABAN
     Dosage: 2.5 MILLIGRAM, BID DUE TO SIDE EFFECT
     Route: 065
  4. ELIQUIS [Suspect]
     Active Substance: APIXABAN
     Dosage: INCREASE TO APIXABAN 2 X 5 MG WITH STABLE HEMOGLOBIN
     Route: 065
  5. HEPARIN SODIUM [Concomitant]
     Active Substance: HEPARIN SODIUM
     Indication: Product used for unknown indication
     Dosage: 3X 7500
     Route: 058

REACTIONS (6)
  - Dysarthria [Unknown]
  - Upper gastrointestinal haemorrhage [Unknown]
  - Vomiting [Unknown]
  - Haemoglobin decreased [Unknown]
  - Ischaemia [Unknown]
  - Endoscopy small intestine [Unknown]

NARRATIVE: CASE EVENT DATE: 20210414
